FAERS Safety Report 5716211-9 (Version None)
Quarter: 2008Q2

REPORT INFORMATION
  Report Type: 
  Country: None (occurrence: None)
  Receive Date: 20080424
  Receipt Date: 20080416
  Transmission Date: 20081010
  Serious: Yes (Hospitalization, Other)
  Sender: FDA-Public Use
  Company Number: US-ASTRAZENECA-2008UW05072

PATIENT
  Age: 75 Year
  Sex: Male

DRUGS (11)
  1. SEROQUEL [Suspect]
     Indication: PSYCHOTIC DISORDER
     Route: 048
     Dates: start: 20080305
  2. SEROQUEL [Suspect]
     Route: 048
     Dates: start: 20080307, end: 20080312
  3. LORAZEPAM [Concomitant]
  4. FLUOXETINE [Concomitant]
  5. OLANZAPINE [Concomitant]
  6. LOVENOX [Concomitant]
  7. INSULIN [Concomitant]
  8. SIMVASTATIN [Concomitant]
  9. OMEPRAZOLE [Concomitant]
  10. METFORMIN HCL [Concomitant]
  11. ASPIRIN [Concomitant]

REACTIONS (4)
  - FALL [None]
  - HYPOTENSION [None]
  - LOSS OF CONSCIOUSNESS [None]
  - SYNCOPE [None]
